FAERS Safety Report 4599063-2 (Version None)
Quarter: 2005Q1

REPORT INFORMATION
  Report Type: 
  Country: None (occurrence: None)
  Receive Date: 20050302
  Receipt Date: 20050217
  Transmission Date: 20050727
  Serious: Yes (Hospitalization)
  Sender: FDA-Public Use
  Company Number: 2005032513

PATIENT
  Age: 61 Year
  Sex: Male

DRUGS (4)
  1. TRANEXAMIC ACID (TRANEXAMIC ACID) [Suspect]
     Indication: HAEMORRHAGE
     Dosage: 500 MG 4 TIMES DAILY, ORAL
     Route: 048
  2. LISINOPRIL [Concomitant]
  3. METOPROLOL TARTRATE [Concomitant]
  4. ...... [Concomitant]

REACTIONS (4)
  - BLOOD CREATINE INCREASED [None]
  - BLOOD UREA INCREASED [None]
  - MYOCLONUS [None]
  - SEDATION [None]
